FAERS Safety Report 21741829 (Version 1)
Quarter: 2022Q4

REPORT INFORMATION
  Report Type: Report from Study
  Country: US (occurrence: US)
  Receive Date: 20221216
  Receipt Date: 20221216
  Transmission Date: 20230113
  Serious: No
  Sender: FDA-Public Use
  Company Number: US-ABBVIE-4200785

PATIENT
  Age: 16 Year
  Sex: Female

DRUGS (1)
  1. HUMIRA [Suspect]
     Active Substance: ADALIMUMAB
     Indication: Crohn^s disease
     Dosage: CITRATE FREE, FORM STRENGTH : 40 MILLIGRAM
     Route: 058

REACTIONS (4)
  - Nasopharyngitis [Recovered/Resolved]
  - Ear infection [Recovered/Resolved]
  - Oropharyngeal pain [Recovered/Resolved]
  - Rhinorrhoea [Recovered/Resolved]

NARRATIVE: CASE EVENT DATE: 20221002
